FAERS Safety Report 4731074-6 (Version None)
Quarter: 2005Q3

REPORT INFORMATION
  Report Type: 
  Country: None (occurrence: None)
  Receive Date: 20050726
  Receipt Date: 20050316
  Transmission Date: 20060218
  Serious: Yes (Other)
  Sender: FDA-Public Use
  Company Number: 05GER0016

PATIENT
  Age: 64 Year
  Sex: Female

DRUGS (3)
  1. AGGRASTAT [Suspect]
     Indication: CEREBRAL ARTERY STENOSIS
     Dosage: 5.5ML
     Dates: start: 20040327, end: 20040327
  2. ALTEPLASE (ALTEPLASE) (125 MILLIGRAM) [Suspect]
     Indication: CEREBRAL ARTERY STENOSIS
     Dosage: 125 MG QD
     Dates: start: 20040327, end: 20040327
  3. HEPARIN [Suspect]
     Indication: CEREBRAL ARTERY STENOSIS
     Dosage: 500 IU/H
     Dates: start: 20040327, end: 20040327

REACTIONS (1)
  - HAEMARTHROSIS [None]
